FAERS Safety Report 25178128 (Version 1)
Quarter: 2025Q2

REPORT INFORMATION
  Report Type: Spontaneous
  Country: US (occurrence: None)
  Receive Date: 20250409
  Receipt Date: 20250409
  Transmission Date: 20250716
  Serious: Yes (Death, Hospitalization)
  Sender: FDA-CTU
  Company Number: None

PATIENT
  Age: 65 Year
  Sex: Male
  Weight: 59.35 kg

DRUGS (1)
  1. CISPLATIN [Suspect]
     Active Substance: CISPLATIN

REACTIONS (3)
  - Cardiac arrest [None]
  - Thrombosis [None]
  - Pupil fixed [None]

NARRATIVE: CASE EVENT DATE: 20250324
